FAERS Safety Report 11068410 (Version 3)
Quarter: 2015Q2

REPORT INFORMATION
  Report Type: Report from Study
  Country: DE (occurrence: DE)
  Receive Date: 20150427
  Receipt Date: 20150513
  Transmission Date: 20150821
  Serious: Yes (Hospitalization, Disabling)
  Sender: FDA-Public Use
  Company Number: DE-SA-2015SA052900

PATIENT
  Age: 50 Year
  Sex: Female
  Weight: 54 kg

DRUGS (6)
  1. FLUOROURACIL. [Concomitant]
     Active Substance: FLUOROURACIL
  2. IRINOTECAN [Concomitant]
     Active Substance: IRINOTECAN
  3. ZALTRAP [Suspect]
     Active Substance: ZIV-AFLIBERCEPT
     Indication: COLORECTAL CANCER METASTATIC
     Route: 042
     Dates: start: 20150331, end: 20150331
  4. FOLINIC ACID [Concomitant]
     Active Substance: LEUCOVORIN
  5. ZALTRAP [Suspect]
     Active Substance: ZIV-AFLIBERCEPT
     Indication: COLORECTAL CANCER METASTATIC
     Route: 042
     Dates: start: 20150310, end: 20150310
  6. TAZOBACTAM [Concomitant]
     Active Substance: TAZOBACTAM
     Indication: BACTERIAL INFECTION
     Route: 042
     Dates: start: 20150423, end: 20150508

REACTIONS (3)
  - Urinary fistula [Recovered/Resolved]
  - Urinary tract stoma complication [Recovered/Resolved]
  - Pyrexia [Recovered/Resolved]

NARRATIVE: CASE EVENT DATE: 20150415
